FAERS Safety Report 20718310 (Version 2)
Quarter: 2022Q3

REPORT INFORMATION
  Report Type: Spontaneous
  Country: US (occurrence: US)
  Receive Date: 20220418
  Receipt Date: 20220719
  Transmission Date: 20221027
  Serious: Yes (Other)
  Sender: FDA-Public Use
  Company Number: US-UROGEN PHARMA LTD.-2022-UGN-000022

PATIENT

DRUGS (6)
  1. JELMYTO [Suspect]
     Active Substance: MITOMYCIN
     Indication: Transitional cell cancer of the renal pelvis and ureter
     Dosage: 15 ML, ONE TIMES PER WEEK (INSTILLATION)
     Dates: start: 20220131, end: 20220131
  2. JELMYTO [Suspect]
     Active Substance: MITOMYCIN
     Dosage: 15 ML, ONE TIMES PER WEEK (INSTILLATION)
     Dates: start: 20220207, end: 20220207
  3. JELMYTO [Suspect]
     Active Substance: MITOMYCIN
     Dosage: 15 ML, ONE TIMES PER WEEK (INSTILLATION)
     Dates: start: 20220214, end: 20220214
  4. JELMYTO [Suspect]
     Active Substance: MITOMYCIN
     Dosage: 15 ML, ONE TIMES PER WEEK (INSTILLATION)
     Dates: start: 20220221, end: 20220221
  5. JELMYTO [Suspect]
     Active Substance: MITOMYCIN
     Dosage: 15 ML, ONE TIMES PER WEEK (INSTILLATION)
     Dates: start: 20220228, end: 20220228
  6. JELMYTO [Suspect]
     Active Substance: MITOMYCIN
     Dosage: 15 ML, ONE TIMES PER WEEK (INSTILLATION)
     Dates: start: 20220307, end: 20220307

REACTIONS (1)
  - Ureteric obstruction [Unknown]

NARRATIVE: CASE EVENT DATE: 20220228
